FAERS Safety Report 12155735 (Version 1)
Quarter: 2016Q1

REPORT INFORMATION
  Report Type: Spontaneous
  Country: CN (occurrence: CN)
  Receive Date: 20160307
  Receipt Date: 20160307
  Transmission Date: 20160526
  Serious: Yes (Other)
  Sender: FDA-Public Use
  Company Number: CN-CIPLA LTD.-2016CN02008

PATIENT

DRUGS (5)
  1. ENDOSTAR [Suspect]
     Active Substance: ENDOSTATIN
     Indication: COLORECTAL CANCER
     Dosage: 15 MG, DROPPED FROM DAY 1 TO DAY 14 ADMINISTERED AT 3-WEEK INTERVALS
     Route: 042
  2. FLUOROURACIL. [Suspect]
     Active Substance: FLUOROURACIL
     Indication: COLORECTAL CANCER
     Dosage: 400 MG/M2 ADMINISTERED AT 3-WEEK INTERVALS.
     Route: 040
  3. FLUOROURACIL. [Suspect]
     Active Substance: FLUOROURACIL
     Dosage: 2.0 G/M2 AS 46 H INFUSION ADMINISTERED AT 3-WEEK INTERVALS
  4. IRINOTECAN [Suspect]
     Active Substance: IRINOTECAN
     Indication: COLORECTAL CANCER
     Dosage: UNK, 2 H INFUSION ADMINISTERED AT 3-WEEK INTERVALS
  5. CALCIUM FOLINATE [Suspect]
     Active Substance: LEUCOVORIN CALCIUM
     Indication: COLORECTAL CANCER
     Dosage: 200 MG/M2 AS A 2 H INFUSION ADMINISTERED AT 3-WEEK INTERVALS

REACTIONS (1)
  - Hypertension [Recovered/Resolved]
